FAERS Safety Report 16907669 (Version 1)
Quarter: 2019Q4

REPORT INFORMATION
  Report Type: Spontaneous
  Country: GR (occurrence: GR)
  Receive Date: 20191011
  Receipt Date: 20191011
  Transmission Date: 20200122
  Serious: Yes (Death)
  Sender: FDA-Public Use
  Company Number: GR-ROCHE-2320543

PATIENT
  Sex: Male

DRUGS (15)
  1. ENDOXAN [CYCLOPHOSPHAMIDE] [Suspect]
     Active Substance: CYCLOPHOSPHAMIDE
     Indication: NON-HODGKIN^S LYMPHOMA
     Dosage: NHL, 6 CYCLES
     Route: 042
     Dates: start: 20180704, end: 20181018
  2. VINCRISTINE [Suspect]
     Active Substance: VINCRISTINE
     Indication: NON-HODGKIN^S LYMPHOMA
     Dosage: NHL, 6 CYCLES
     Route: 042
     Dates: start: 20180704, end: 20181018
  3. METHYLPREDNISOLONE. [Concomitant]
     Active Substance: METHYLPREDNISOLONE
     Indication: NON-HODGKIN^S LYMPHOMA
     Dosage: 6 CYCLES
     Route: 065
     Dates: start: 20181213, end: 20190114
  4. NAVELBINE [Concomitant]
     Active Substance: VINORELBINE TARTRATE
     Indication: NON-HODGKIN^S LYMPHOMA
     Dosage: NHL, 2 CYCLES
     Route: 042
     Dates: start: 20190215, end: 20190325
  5. MABTHERA [Suspect]
     Active Substance: RITUXIMAB
     Indication: NON-HODGKIN^S LYMPHOMA
     Dosage: 25-JUL-2018 TO 18-OCT-2018 (5 CYCLES), 13-DEC-2018 TO 09-JAN-2019 (2 CYCLES), 15-FEB-2019 TO 25-MAR-
     Route: 058
     Dates: start: 20180725
  6. ETOPOSIDE. [Concomitant]
     Active Substance: ETOPOSIDE
     Indication: NON-HODGKIN^S LYMPHOMA
     Dosage: 6 CYCLES
     Route: 065
     Dates: start: 20181213, end: 20190114
  7. CAELYX [Concomitant]
     Active Substance: DOXORUBICIN HYDROCHLORIDE
     Indication: NON-HODGKIN^S LYMPHOMA
     Dosage: NHL, 2 CYCLES
     Route: 042
     Dates: start: 20190215, end: 20190325
  8. CYTARABINE. [Concomitant]
     Active Substance: CYTARABINE
     Indication: NON-HODGKIN^S LYMPHOMA
     Dosage: 6 CYCLES
     Route: 065
     Dates: start: 20181213, end: 20190114
  9. POLATUZUMAB VEDOTIN. [Concomitant]
     Active Substance: POLATUZUMAB VEDOTIN
  10. ADRIABLASTINA [Suspect]
     Active Substance: DOXORUBICIN
     Indication: NON-HODGKIN^S LYMPHOMA
     Dosage: NHL, 6 CYCLES
     Route: 042
     Dates: start: 20180704, end: 20181018
  11. BENDAMUSTINE [Concomitant]
     Active Substance: BENDAMUSTINE
     Indication: NON-HODGKIN^S LYMPHOMA
     Route: 065
     Dates: start: 20190506, end: 20190603
  12. MABTHERA [Suspect]
     Active Substance: RITUXIMAB
     Indication: NON-HODGKIN^S LYMPHOMA
     Route: 042
     Dates: start: 20180704, end: 20180704
  13. PREDNISOLONE. [Suspect]
     Active Substance: PREDNISOLONE
     Indication: NON-HODGKIN^S LYMPHOMA
     Route: 065
     Dates: start: 20180704, end: 20181018
  14. CISPLATIN. [Concomitant]
     Active Substance: CISPLATIN
     Indication: NON-HODGKIN^S LYMPHOMA
     Dosage: NHL, 2 CYCLES?6 CYCLES
     Route: 042
     Dates: start: 20181213, end: 20190110
  15. GEMZAR [Concomitant]
     Active Substance: GEMCITABINE HYDROCHLORIDE
     Indication: NON-HODGKIN^S LYMPHOMA
     Dosage: NHL, 2 CYCLES
     Route: 042
     Dates: start: 20190215, end: 20190325

REACTIONS (2)
  - Non-Hodgkin^s lymphoma refractory [Fatal]
  - Sepsis [Fatal]
